FAERS Safety Report 9834902 (Version 2)
Quarter: 2014Q2

REPORT INFORMATION
  Report Type: Spontaneous
  Country: US (occurrence: US)
  Receive Date: 20140122
  Receipt Date: 20140417
  Transmission Date: 20141212
  Serious: Yes (Death)
  Sender: FDA-Public Use
  Company Number: US-GLAXOSMITHKLINE-A1057558A

PATIENT
  Age: 64 Year
  Sex: Female
  Weight: 57.3 kg

DRUGS (11)
  1. ADVAIR [Suspect]
     Indication: PRODUCT USED FOR UNKNOWN INDICATION
     Route: 055
     Dates: start: 20120301
  2. AMLODIPINE [Concomitant]
  3. LASIX [Concomitant]
  4. GLYBURIDE [Concomitant]
  5. LOVASTATIN [Concomitant]
  6. METFORMIN [Concomitant]
  7. METOLAZONE [Concomitant]
  8. METOPROLOL TARTRATE [Concomitant]
  9. OMEPRAZOLE [Concomitant]
  10. KCL [Concomitant]
  11. PREDNISONE [Concomitant]

REACTIONS (1)
  - Cardiac arrest [Fatal]
